FAERS Safety Report 6085195-9 (Version None)
Quarter: 2009Q1

REPORT INFORMATION
  Report Type: 
  Country: None (occurrence: None)
  Receive Date: 20090220
  Receipt Date: 20090209
  Transmission Date: 20090719
  Serious: Yes (Other)
  Sender: FDA-Public Use
  Company Number: US-ROCHE-613845

PATIENT
  Sex: Female

DRUGS (2)
  1. PEGASYS [Suspect]
     Indication: DRUG USE FOR UNKNOWN INDICATION
     Dosage: DOSE REPORTED AS 180
     Route: 065
     Dates: start: 20080201, end: 20090206
  2. RIBAPAK [Suspect]
     Indication: DRUG USE FOR UNKNOWN INDICATION
     Dosage: 1200 SPLIT
     Route: 065
     Dates: start: 20080201, end: 20090206

REACTIONS (1)
  - BREAST MASS [None]
